FAERS Safety Report 23978292 (Version 2)
Quarter: 2025Q1

REPORT INFORMATION
  Report Type: Spontaneous
  Country: US (occurrence: US)
  Receive Date: 20240614
  Receipt Date: 20250224
  Transmission Date: 20250409
  Serious: Yes (Death)
  Sender: SUNOVION
  Company Number: US-UROVANT SCIENCES GMBH-202406-URV-000847

PATIENT

DRUGS (1)
  1. GEMTESA [Suspect]
     Active Substance: VIBEGRON
     Indication: Product used for unknown indication
     Dosage: 75 MG, QD, WITH OR WITHOUT FOOD
     Route: 048

REACTIONS (1)
  - Illness [Fatal]
